FAERS Safety Report 7790702-1 (Version None)
Quarter: 2011Q3

REPORT INFORMATION
  Report Type: 
  Country: None (occurrence: None)
  Receive Date: 20110930
  Receipt Date: 20110928
  Transmission Date: 20111222
  Serious: Yes (Hospitalization)
  Sender: FDA-Public Use
  Company Number: NL-ABBOTT-11P-114-0856472-00

PATIENT
  Sex: Female
  Weight: 73 kg

DRUGS (8)
  1. HUMIRA [Suspect]
     Indication: PSORIATIC ARTHROPATHY
     Route: 058
     Dates: start: 20090501, end: 20110301
  2. PANTOPRAZOLE [Concomitant]
     Indication: PRODUCT USED FOR UNKNOWN INDICATION
  3. HUMIRA [Suspect]
     Route: 058
     Dates: start: 20110404, end: 20110830
  4. CYRESS [Concomitant]
     Indication: HYPERTENSION
     Route: 048
     Dates: start: 20110606, end: 20110818
  5. OXAZEPAM [Concomitant]
     Indication: PRODUCT USED FOR UNKNOWN INDICATION
     Dates: end: 20110928
  6. TRIAMTERENE AND HYDROCHLOROTHIAZIDE [Concomitant]
     Indication: PRODUCT USED FOR UNKNOWN INDICATION
     Dosage: 50/25MG
     Dates: start: 20110819
  7. ACETAMINOPHEN [Concomitant]
     Indication: PRODUCT USED FOR UNKNOWN INDICATION
  8. HYDROCHLOROTHIAZIDE [Suspect]
     Indication: HYPERTENSION
     Route: 048
     Dates: start: 20080201, end: 20110818

REACTIONS (5)
  - DIZZINESS [None]
  - EXTRASYSTOLES [None]
  - FEELING ABNORMAL [None]
  - BLOOD POTASSIUM DECREASED [None]
  - FATIGUE [None]
